FAERS Safety Report 16467977 (Version 4)
Quarter: 2019Q3

REPORT INFORMATION
  Report Type: Spontaneous
  Country: US (occurrence: US)
  Receive Date: 20190624
  Receipt Date: 20190827
  Transmission Date: 20191004
  Serious: Yes (Hospitalization, Other)
  Sender: FDA-Public Use
  Company Number: US-GLAXOSMITHKLINE-US2019GSK109815

PATIENT
  Sex: Female

DRUGS (3)
  1. PREVACID [Suspect]
     Active Substance: LANSOPRAZOLE
     Indication: GASTROOESOPHAGEAL REFLUX DISEASE
     Dosage: UNK
     Route: 065
  2. PANTOPRAZOLE [Suspect]
     Active Substance: PANTOPRAZOLE
     Indication: GASTROOESOPHAGEAL REFLUX DISEASE
     Dosage: 40 MG, QD
     Route: 048
  3. PREVACID [Suspect]
     Active Substance: LANSOPRAZOLE
     Indication: GASTROOESOPHAGEAL REFLUX DISEASE
     Dosage: UNK
     Route: 065

REACTIONS (23)
  - Urinary tract obstruction [Unknown]
  - Renal atrophy [Unknown]
  - Ureterolithiasis [Unknown]
  - Nephropathy [Unknown]
  - Single functional kidney [Unknown]
  - Pyelonephritis [Unknown]
  - Ureteric stenosis [Unknown]
  - Urge incontinence [Unknown]
  - Hypertonic bladder [Unknown]
  - Nephrolithiasis [Unknown]
  - Renal injury [Unknown]
  - Renal colic [Unknown]
  - Tubulointerstitial nephritis [Unknown]
  - Acute kidney injury [Not Recovered/Not Resolved]
  - End stage renal disease [Unknown]
  - Pyelonephritis acute [Unknown]
  - Renal hypertension [Unknown]
  - Hydronephrosis [Unknown]
  - Renal cyst [Unknown]
  - Chronic kidney disease [Unknown]
  - Renal failure [Unknown]
  - Haematuria [Unknown]
  - Calculus bladder [Unknown]
